FAERS Safety Report 18517469 (Version 1)
Quarter: 2020Q4

REPORT INFORMATION
  Report Type: Spontaneous
  Country: US (occurrence: US)
  Receive Date: 20201118
  Receipt Date: 20201118
  Transmission Date: 20210114
  Serious: Yes (Death)
  Sender: FDA-Public Use
  Company Number: None

PATIENT
  Age: 39 Year
  Sex: Male
  Weight: 197.7 kg

DRUGS (11)
  1. CEFTRIAXONE 1GM IV DAILY [Concomitant]
     Dates: start: 20201115, end: 20201116
  2. CHOLECALCIFEROL 400 UNIT PO BID [Concomitant]
     Dates: start: 20201116, end: 20201116
  3. INSULIN GLARGINE 10 UNITS SQ BEDTIME [Concomitant]
     Dates: start: 20201116, end: 20201116
  4. AZITHROMYCIN 500MG IV DAILY [Concomitant]
     Dates: start: 20201115, end: 20201116
  5. DEXAMETHASONE 4MG IV X1 DAY THEN 6MG IV X1 DAY [Concomitant]
     Dates: start: 20201115, end: 20201116
  6. INSULIN LISPRO SLIDING SCALE WITH MEALS SQ [Concomitant]
     Dates: start: 20201115, end: 20201116
  7. MELATONIN 3MG PO BEDTIME [Concomitant]
     Dates: start: 20201116, end: 20201116
  8. REMDESIVIR. [Suspect]
     Active Substance: REMDESIVIR
     Indication: COVID-19 PNEUMONIA
     Route: 042
     Dates: start: 20201115, end: 20201116
  9. ASCORBIC ACID 500MG PO Q12HR [Concomitant]
     Dates: start: 20201116, end: 20201116
  10. ZINC SULFATE 220MG PO BID [Concomitant]
     Dates: start: 20201116, end: 20201116
  11. FAMOTIDINE 20MG PO Q12HR [Concomitant]
     Dates: start: 20201115, end: 20201116

REACTIONS (24)
  - Blood albumin decreased [None]
  - Aspartate aminotransferase increased [None]
  - Blood sodium decreased [None]
  - Blood calcium decreased [None]
  - Serum ferritin increased [None]
  - C-reactive protein increased [None]
  - Mean cell haemoglobin concentration decreased [None]
  - Mean platelet volume increased [None]
  - Neutrophil percentage increased [None]
  - Neutrophil count increased [None]
  - Blood chloride decreased [None]
  - Acute respiratory failure [None]
  - Respiratory failure [None]
  - Monocyte percentage decreased [None]
  - Eosinophil percentage decreased [None]
  - Lymphocyte count decreased [None]
  - Fibrin D dimer increased [None]
  - Blood bicarbonate increased [None]
  - Blood potassium decreased [None]
  - Blood lactate dehydrogenase increased [None]
  - Lymphocyte percentage decreased [None]
  - Mean cell haemoglobin decreased [None]
  - Basophil percentage decreased [None]
  - Blood fibrinogen increased [None]

NARRATIVE: CASE EVENT DATE: 20201117
